FAERS Safety Report 8764961 (Version 1)
Quarter: 2012Q4

REPORT INFORMATION
  Report Type: 
  Country: US (occurrence: US)
  Receive Date: 20120903
  Receipt Date: 20120903
  Transmission Date: 20130627
  Serious: Yes (Other)
  Sender: FDA-Public Use
  Company Number: US-BRISTOL-MYERS SQUIBB COMPANY-16890790

PATIENT
  Age: 52 Year
  Sex: Female

DRUGS (1)
  1. ORENCIA [Suspect]
     Dosage: Last dose: 13Aug2012
     Route: 058

REACTIONS (4)
  - Arthropathy [Unknown]
  - Neuropathy peripheral [Unknown]
  - Cough [Unknown]
  - Weight increased [Unknown]
